FAERS Safety Report 20354564 (Version 2)
Quarter: 2022Q1

REPORT INFORMATION
  Report Type: Spontaneous
  Country: US (occurrence: US)
  Receive Date: 20220120
  Receipt Date: 20220203
  Transmission Date: 20220423
  Serious: Yes (Other)
  Sender: FDA-Public Use
  Company Number: US-TEVA-2022-US-1999084

PATIENT
  Age: 80 Year
  Sex: Male

DRUGS (7)
  1. ABIRATERONE [Suspect]
     Active Substance: ABIRATERONE
     Indication: Prostate cancer metastatic
     Route: 065
  2. DOCETAXEL [Suspect]
     Active Substance: DOCETAXEL
     Indication: Prostate cancer metastatic
     Route: 065
  3. GOSERELIN [Suspect]
     Active Substance: GOSERELIN
     Indication: Prostate cancer metastatic
     Route: 065
  4. ENZALUTAMIDE [Suspect]
     Active Substance: ENZALUTAMIDE
     Indication: Prostate cancer metastatic
     Route: 065
  5. SIPULEUCEL-T [Suspect]
     Active Substance: SIPULEUCEL-T
     Indication: Prostate cancer metastatic
     Route: 065
  6. CYCLOPHOSPHAMIDE [Suspect]
     Active Substance: CYCLOPHOSPHAMIDE
     Indication: Prostate cancer metastatic
     Dosage: 250 MILLIGRAM DAILY; FOR 2 WEEKS AND THEN 2 WEEKS OFF
     Route: 065
  7. DEXAMETHASONE [Concomitant]
     Active Substance: DEXAMETHASONE
     Indication: Prostate cancer metastatic
     Dosage: 1.5 MILLIGRAM DAILY; FOR 2 WEEKS AND THEN 2 WEEKS OFF.
     Route: 065

REACTIONS (3)
  - Treatment failure [Unknown]
  - Neutropenia [Unknown]
  - Thrombocytopenia [Unknown]
